FAERS Safety Report 9311295 (Version 2)
Quarter: 2013Q3

REPORT INFORMATION
  Report Type: Spontaneous
  Country: BE (occurrence: BE)
  Receive Date: 20130528
  Receipt Date: 20130822
  Transmission Date: 20140515
  Serious: Yes (Other)
  Sender: FDA-Public Use
  Company Number: BE-ASTELLAS-2013US005379

PATIENT
  Age: 60 Year
  Sex: Male

DRUGS (6)
  1. PROGRAF [Suspect]
     Indication: PROPHYLAXIS AGAINST GRAFT VERSUS HOST DISEASE
     Dosage: 8 MG, UNKNOWN/D
     Route: 048
     Dates: start: 20120911
  2. SIROLIMUS [Suspect]
     Indication: GRAFT VERSUS HOST DISEASE
     Dosage: 2 MG, UNKNOWN/D
     Route: 048
     Dates: start: 20120911
  3. VANCOMYCIN [Suspect]
     Indication: FEBRILE NEUTROPENIA
     Dosage: 2 G, UNKNOWN/D
     Route: 042
     Dates: start: 20120920, end: 20120930
  4. FLUDARABINE [Concomitant]
     Indication: STEM CELL TRANSPLANT
     Dosage: UNK
     Route: 065
  5. BUSULFAN [Concomitant]
     Indication: STEM CELL TRANSPLANT
     Dosage: UNK
     Route: 065
  6. ATG                                /00575401/ [Concomitant]
     Indication: STEM CELL TRANSPLANT
     Dosage: UNK
     Route: 065

REACTIONS (3)
  - Off label use [Unknown]
  - Thrombotic microangiopathy [Recovering/Resolving]
  - Renal failure chronic [Unknown]
